FAERS Safety Report 4951293-3 (Version None)
Quarter: 2006Q1

REPORT INFORMATION
  Report Type: 
  Country: None (occurrence: None)
  Receive Date: 20060317
  Receipt Date: 20060307
  Transmission Date: 20060701
  Serious: Yes (Other)
  Sender: FDA-Public Use
  Company Number: HQWYE217908MAR06

PATIENT
  Age: 43 Year
  Sex: Male

DRUGS (4)
  1. RAPAMUNE [Suspect]
     Indication: PROPHYLAXIS AGAINST TRANSPLANT REJECTION
     Dates: start: 20050307, end: 20050517
  2. CORTICOSTEROIDS (CORTICOSTEROIDS) [Suspect]
  3. MYCOPHENOLATE MOFETIL [Suspect]
  4. ZENAPAX [Suspect]

REACTIONS (3)
  - DIABETES MELLITUS INADEQUATE CONTROL [None]
  - PAIN IN EXTREMITY [None]
  - SKIN ULCER [None]
